FAERS Safety Report 9730908 (Version 1)
Quarter: 2013Q4

REPORT INFORMATION
  Report Type: Spontaneous
  Country: TG (occurrence: TG)
  Receive Date: 20131205
  Receipt Date: 20131205
  Transmission Date: 20140711
  Serious: Yes (Other)
  Sender: FDA-Public Use
  Company Number: TG-B.I. PHARMACEUTICALS,INC./RIDGEFIELD-2013-BI-39691GD

PATIENT
  Age: 35 Year
  Sex: Female
  Weight: 63 kg

DRUGS (4)
  1. DIPYRIDAMOLE [Suspect]
     Indication: ISCHAEMIC STROKE
  2. PREDNISONE [Suspect]
     Indication: ISCHAEMIC STROKE
  3. BETA BLOCKER [Suspect]
     Indication: ISCHAEMIC STROKE
  4. IRON [Suspect]
     Indication: ISCHAEMIC STROKE

REACTIONS (2)
  - Ischaemic stroke [Unknown]
  - Motor dysfunction [Unknown]
